FAERS Safety Report 6871664-8 (Version None)
Quarter: 2010Q3

REPORT INFORMATION
  Report Type: 
  Country: None (occurrence: None)
  Receive Date: 20100723
  Receipt Date: 20100715
  Transmission Date: 20110219
  Serious: Yes (Death)
  Sender: FDA-Public Use
  Company Number: GXKR2010AU07856

PATIENT
  Age: 38 Year
  Sex: Male

DRUGS (4)
  1. VENLAFAXINE HCL [Suspect]
     Route: 065
  2. METHADONE (NGX) [Interacting]
     Route: 065
  3. DIAZEPAM [Interacting]
     Route: 065
  4. TETRAHYDROCANNABINOL [Interacting]
     Route: 065

REACTIONS (2)
  - DRUG INTERACTION [None]
  - DRUG TOXICITY [None]
